FAERS Safety Report 7607538-4 (Version None)
Quarter: 2011Q3

REPORT INFORMATION
  Report Type: 
  Country: None (occurrence: None)
  Receive Date: 20110713
  Receipt Date: 20110705
  Transmission Date: 20111222
  Serious: Yes (Other)
  Sender: FDA-Public Use
  Company Number: DE-BAYER-2011-048603

PATIENT
  Age: 56 Year
  Sex: Female
  Weight: 100 kg

DRUGS (15)
  1. RAMIPRIL [Concomitant]
     Dosage: 5 MG, BID
  2. MEDRONIC ACID [Concomitant]
     Dosage: UNK
  3. METHYLPREDNISOLONE ACETATE [Concomitant]
     Indication: BEHCET'S SYNDROME
     Dosage: 4 MG, QD
  4. METHYLPREDNISOLONE ACETATE [Concomitant]
     Indication: RHEUMATOID ARTHRITIS
  5. DICLOFENAC [Concomitant]
     Indication: RHEUMATOID ARTHRITIS
     Dosage: 75 MG, UNK
  6. CARBIMAZOL [Concomitant]
     Indication: HYPOTHYROIDISM
  7. CALCIUM CARBONATE [Concomitant]
     Dosage: 1000 MG, QD
  8. OMEPRAZOLE [Concomitant]
     Dosage: 20 MG, QD
  9. AVELOX [Suspect]
     Dosage: 400 MG, QD
     Route: 048
     Dates: start: 20110210, end: 20110212
  10. CARBIMAZOL [Concomitant]
     Indication: GOITRE
     Dosage: 5 MG, UNK
  11. DYAZIDE [Concomitant]
  12. ENBREL [Concomitant]
     Dosage: 50 MG, OW
  13. TRIAMTEREN HCT [Concomitant]
  14. DICLOFENAC [Concomitant]
     Indication: SPINAL OSTEOARTHRITIS
  15. ERGOCALCIFEROL [Concomitant]
     Dosage: 1000 IU, QD

REACTIONS (1)
  - URINARY RETENTION [None]
